FAERS Safety Report 6377960-5 (Version None)
Quarter: 2009Q3

REPORT INFORMATION
  Report Type: 
  Country: None (occurrence: None)
  Receive Date: 20090925
  Receipt Date: 20090917
  Transmission Date: 20100115
  Serious: Yes (Hospitalization)
  Sender: FDA-Public Use
  Company Number: PHHO2008HU05033

PATIENT
  Sex: Female

DRUGS (2)
  1. ERL 080A ERL+TAB [Suspect]
     Indication: SYSTEMIC LUPUS ERYTHEMATOSUS
     Dosage: 2760 MG, UNK
     Route: 048
     Dates: start: 20070425, end: 20071009
  2. SOLU-MEDROL [Concomitant]
     Dosage: UNK

REACTIONS (5)
  - HYDROTHORAX [None]
  - HYPOTENSION [None]
  - PLEURODESIS [None]
  - PNEUMONIA [None]
  - PYREXIA [None]
